FAERS Safety Report 25136906 (Version 1)
Quarter: 2025Q1

REPORT INFORMATION
  Report Type: Spontaneous
  Country: US (occurrence: US)
  Receive Date: 20250328
  Receipt Date: 20250328
  Transmission Date: 20250409
  Serious: No
  Sender: BAUSCH AND LOMB
  Company Number: US-PROSAR-2012P1043812

PATIENT
  Sex: Female

DRUGS (1)
  1. MINITRAN [Suspect]
     Active Substance: NITROGLYCERIN
     Indication: Angina pectoris
     Route: 062
     Dates: start: 1994

REACTIONS (1)
  - Headache [Unknown]

NARRATIVE: CASE EVENT DATE: 19940101
